FAERS Safety Report 22739876 (Version 5)
Quarter: 2023Q4

REPORT INFORMATION
  Report Type: Spontaneous
  Country: DE (occurrence: DE)
  Receive Date: 20230723
  Receipt Date: 20231110
  Transmission Date: 20240110
  Serious: Yes (Other)
  Sender: FDA-Public Use
  Company Number: DE-002147023-NVSC2023DE150884

PATIENT
  Sex: Male
  Weight: 86 kg

DRUGS (20)
  1. HYDROMORPHONE [Suspect]
     Active Substance: HYDROMORPHONE
     Indication: Back pain
     Dosage: 2 DOSAGE FORM, ONCE A DAY
     Route: 065
  2. HYDROMORPHONE [Suspect]
     Active Substance: HYDROMORPHONE
     Dosage: 4 MILLIGRAM, TWO TIMES A DAY
     Route: 065
  3. HYDROMORPHONE [Suspect]
     Active Substance: HYDROMORPHONE
     Dosage: 4 MILLIGRAM, TWO TIMES A DAY
     Route: 065
  4. HYDROMORPHONE [Suspect]
     Active Substance: HYDROMORPHONE
     Dosage: UNK 0.5 ONCE A DAY
     Route: 065
  5. HYDROMORPHONE [Suspect]
     Active Substance: HYDROMORPHONE
     Dosage: 4 MILLIGRAM, ONCE A DAY
     Route: 065
  6. ELIQUIS [Suspect]
     Active Substance: APIXABAN
     Indication: Thrombosis
     Dosage: 10 MILLIGRAM, ONCE A DAY
     Route: 065
     Dates: start: 2023, end: 2023
  7. ELIQUIS [Suspect]
     Active Substance: APIXABAN
     Indication: Thrombosis prophylaxis
     Dosage: 2 DOSAGE FORM, ONCE A DAY
     Route: 065
  8. ELIQUIS [Suspect]
     Active Substance: APIXABAN
     Dosage: 5 MILLIGRAM, TWO TIMES A DAY
     Route: 065
     Dates: end: 2023
  9. ACETAMINOPHEN [Suspect]
     Active Substance: ACETAMINOPHEN
     Indication: Product used for unknown indication
     Dosage: UNK, PRN
     Route: 065
  10. POLYETHYLENE GLYCOLS [Suspect]
     Active Substance: POLYETHYLENE GLYCOLS
     Indication: Product used for unknown indication
     Dosage: 1 DOSAGE FORM (1 SACHET EVERY 2 DAYS)
     Route: 065
  11. OFIRMEV [Suspect]
     Active Substance: ACETAMINOPHEN
     Indication: Product used for unknown indication
     Dosage: UNK, PRN
     Route: 065
  12. TABRECTA [Suspect]
     Active Substance: CAPMATINIB
     Indication: Non-small cell lung cancer
     Dosage: 150 MILLIGRAM
     Route: 065
     Dates: start: 202206
  13. TORSEMIDE [Suspect]
     Active Substance: TORSEMIDE
     Indication: Product used for unknown indication
     Dosage: UNK UNK, ONCE A DAY (QD (1-0-0))
     Route: 065
  14. TORSEMIDE [Suspect]
     Active Substance: TORSEMIDE
     Dosage: UNK UNK, ONCE A DAY (BID (1-0-1))
     Route: 065
     Dates: start: 202206
  15. CALCIUM [Concomitant]
     Active Substance: CALCIUM
     Indication: Product used for unknown indication
     Dosage: 1 DOSAGE FORM, ONCE A DAY
     Route: 065
  16. FOLIC ACID [Concomitant]
     Active Substance: FOLIC ACID
     Indication: Product used for unknown indication
     Dosage: 1 DOSAGE FORM, ONCE A DAY
     Route: 065
  17. VITAMIN D NOS [Concomitant]
     Active Substance: VITAMIN D NOS
     Indication: Product used for unknown indication
     Dosage: UNK (LIQUID, ACCORDING TO LEVEL)
     Route: 065
  18. VENORUTON INTENS [Concomitant]
     Indication: Product used for unknown indication
     Dosage: UNK (IF DELIVERED, CORRESPONDING OF PREDETERMINED DOSAGE FOR AVOIDING OF CAPILLARY-PERMEABILITY)
     Route: 065
  19. ZOMETA [Concomitant]
     Active Substance: ZOLEDRONIC ACID
     Indication: Product used for unknown indication
     Dosage: UNK (EVERY MONTH)
     Route: 065
  20. VITAMIN D [Concomitant]
     Active Substance: VITAMIN D NOS
     Indication: Product used for unknown indication
     Dosage: UNK (LIQUID, ACCORDING TO LEVEL)
     Route: 065

REACTIONS (34)
  - Thrombosis [Recovered/Resolved]
  - Chylothorax [Unknown]
  - Deafness [Unknown]
  - Amylase increased [Unknown]
  - Fluid retention [Not Recovered/Not Resolved]
  - Blood calcium decreased [Unknown]
  - Glomerular filtration rate increased [Unknown]
  - Protein deficiency [Unknown]
  - Red blood cell count decreased [Unknown]
  - Skin hypertrophy [Unknown]
  - Fatigue [Unknown]
  - Breath sounds abnormal [Unknown]
  - Conjunctivitis [Recovering/Resolving]
  - Asthma [Recovering/Resolving]
  - Blood albumin decreased [Unknown]
  - Weight increased [Recovering/Resolving]
  - Gynaecomastia [Unknown]
  - Back pain [Not Recovered/Not Resolved]
  - Hyperaesthesia [Unknown]
  - Dizziness [Recovered/Resolved]
  - Tinnitus [Unknown]
  - Asthenia [Unknown]
  - Oedema peripheral [Not Recovered/Not Resolved]
  - Haemoglobin decreased [Unknown]
  - Pleural effusion [Recovering/Resolving]
  - Dyspnoea [Not Recovered/Not Resolved]
  - Sputum increased [Recovering/Resolving]
  - Lymphoedema [Unknown]
  - Blood urea increased [Unknown]
  - Hypoacusis [Unknown]
  - Blood creatinine increased [Unknown]
  - Blood potassium increased [Unknown]
  - Lipase increased [Unknown]
  - Off label use [Unknown]

NARRATIVE: CASE EVENT DATE: 20220811
